FAERS Safety Report 9228637 (Version 1)
Quarter: 2013Q2

REPORT INFORMATION
  Report Type: Spontaneous
  Country: DE (occurrence: DE)
  Receive Date: 20130412
  Receipt Date: 20130412
  Transmission Date: 20140414
  Serious: Yes (Other)
  Sender: FDA-Public Use
  Company Number: DE-PFIZER INC-2013046192

PATIENT
  Age: 63 Year
  Sex: Male
  Weight: 73 kg

DRUGS (5)
  1. METFORMIN HCL [Suspect]
     Indication: DIABETES MELLITUS
     Dosage: 1000 MG, 2X/DAY,
     Route: 048
     Dates: start: 2005
  2. AMLODIPINE BESILATE [Suspect]
     Indication: HYPERTENSION
     Dosage: 10 MG/ DAILY
     Route: 048
     Dates: start: 2008
  3. METOHEXAL [Suspect]
     Indication: HYPERTENSION
     Dosage: 190 MG, 2X/DAY
     Route: 048
     Dates: start: 2005
  4. COAPROVEL [Concomitant]
     Indication: HYPERTENSION
     Dosage: 1 DF, 1X/DAY
     Route: 048
     Dates: start: 2005
  5. FALITHROM [Concomitant]
     Indication: ANTICOAGULANT THERAPY
     Dosage: 3 MG DAILY
     Route: 048
     Dates: start: 2005

REACTIONS (2)
  - Acne [Not Recovered/Not Resolved]
  - Skin fissures [Not Recovered/Not Resolved]
